FAERS Safety Report 17914715 (Version 2)
Quarter: 2020Q2

REPORT INFORMATION
  Report Type: Spontaneous
  Country: NL (occurrence: NL)
  Receive Date: 20200619
  Receipt Date: 20200629
  Transmission Date: 20200714
  Serious: Yes (Hospitalization)
  Sender: FDA-Public Use
  Company Number: NL-TEVA-2020-NL-1788143

PATIENT
  Age: 25 Year
  Sex: Male
  Weight: 70 kg

DRUGS (1)
  1. ISOTRETINOINE [Suspect]
     Active Substance: ISOTRETINOIN
     Indication: ACNE
     Dosage: 1DD1, 30 MG, THERAPY END DATE: ASKED BUT UNKNOWN
     Dates: start: 2018

REACTIONS (2)
  - Encephalitis [Recovering/Resolving]
  - Reversible splenial lesion syndrome [Recovering/Resolving]

NARRATIVE: CASE EVENT DATE: 20200510
